FAERS Safety Report 8323249 (Version 6)
Quarter: 2013Q2

REPORT INFORMATION
  Report Type: Spontaneous
  Country: JP (occurrence: JP)
  Receive Date: 20120105
  Receipt Date: 20130530
  Transmission Date: 20140414
  Serious: Yes (Hospitalization, Other)
  Sender: FDA-Public Use
  Company Number: PHHY2009JP53414

PATIENT
  Age: 2 Year
  Sex: Female
  Weight: 19 kg

DRUGS (9)
  1. NEORAL [Suspect]
     Indication: NEPHROTIC SYNDROME
     Dosage: 0.6 ML, BID
     Route: 048
     Dates: start: 20091120, end: 20091124
  2. NEORAL [Interacting]
     Dosage: 1.2 ML, BID
     Route: 048
     Dates: start: 20091125, end: 20091128
  3. NEORAL [Interacting]
     Dosage: 0.4 ML, BID
     Route: 048
     Dates: start: 20091212
  4. NEORAL [Interacting]
     Dosage: 100 MG IN TWO DIVIDED DOSES DAILY
     Route: 048
  5. METHYLPREDNISOLONE [Interacting]
     Indication: NEPHROTIC SYNDROME
     Dosage: 375 MG, PER DAY
     Route: 042
     Dates: start: 20091125, end: 20091127
  6. LOCHOL [Concomitant]
     Indication: HYPERLIPIDAEMIA
     Dosage: 10 MG
     Route: 048
     Dates: start: 20091124
  7. SOLU-MEDROL [Concomitant]
     Indication: NEPHROTIC SYNDROME
     Dosage: 375 MG, UNK
     Route: 042
     Dates: start: 20091125, end: 20091127
  8. LASIX [Concomitant]
     Indication: OEDEMA
     Route: 048
     Dates: start: 20091118, end: 20091211
  9. GASTER [Concomitant]
     Indication: ULCER
     Dosage: 8 MG
     Route: 048
     Dates: start: 20091118

REACTIONS (10)
  - Posterior reversible encephalopathy syndrome [Recovering/Resolving]
  - Altered state of consciousness [Recovered/Resolved]
  - Clonic convulsion [Recovered/Resolved]
  - Eye movement disorder [Unknown]
  - Vomiting [Unknown]
  - Blood pressure increased [Unknown]
  - Blood alkaline phosphatase increased [Unknown]
  - Immunosuppressant drug level decreased [Unknown]
  - Immunosuppressant drug level increased [Unknown]
  - Drug interaction [Recovering/Resolving]
